FAERS Safety Report 24172151 (Version 2)
Quarter: 2024Q3

REPORT INFORMATION
  Report Type: Spontaneous
  Country: CN (occurrence: CN)
  Receive Date: 20240805
  Receipt Date: 20240808
  Transmission Date: 20241017
  Serious: No
  Sender: CSL BEHRING
  Company Number: CN-BEH-2024176600

PATIENT
  Age: 46 Year
  Sex: Male
  Weight: 90 kg

DRUGS (1)
  1. ALBURX [Suspect]
     Active Substance: ALBUMIN HUMAN
     Indication: Hypoproteinaemia
     Dosage: 10 G, QD
     Route: 041
     Dates: start: 20240717, end: 20240718

REACTIONS (2)
  - Rash [Recovering/Resolving]
  - Drug hypersensitivity [Unknown]

NARRATIVE: CASE EVENT DATE: 20240719
